FAERS Safety Report 11359036 (Version 1)
Quarter: 2015Q3

REPORT INFORMATION
  Report Type: Spontaneous
  Country: US (occurrence: None)
  Receive Date: 20150723
  Receipt Date: 20150723
  Transmission Date: 20151125
  Serious: Yes (Hospitalization)
  Sender: FDA-Public Use
  Company Number: 2015AP009717

PATIENT
  Age: 44 Year
  Sex: Male

DRUGS (2)
  1. PRAVASTATIN (PRAVASTATIN) TABLET [Suspect]
     Active Substance: PRAVASTATIN SODIUM
     Indication: HYPERLIPIDAEMIA
  2. ATORVASTATIN CALCIUM (ATORVASTATIN) TABLET [Suspect]
     Active Substance: ATORVASTATIN
     Indication: HYPERLIPIDAEMIA

REACTIONS (2)
  - Myopathy [None]
  - Hepatic enzyme increased [None]
